FAERS Safety Report 8302614-5 (Version None)
Quarter: 2012Q2

REPORT INFORMATION
  Report Type: 
  Country: None (occurrence: None)
  Receive Date: 20120418
  Receipt Date: 20120411
  Transmission Date: 20120825
  Serious: Yes (Hospitalization)
  Sender: FDA-Public Use
  Company Number: 2012HGS-003500

PATIENT
  Age: 46 Year
  Sex: Female
  Weight: 136.0791 kg

DRUGS (5)
  1. BENICAR [Concomitant]
  2. FLUOXETINE [Concomitant]
  3. HYDROXYCHLOROQUINE SULFATE [Concomitant]
  4. LYRICA [Concomitant]
  5. BENLYSTA [Suspect]
     Indication: SYSTEMIC LUPUS ERYTHEMATOSUS
     Dosage: INTRAVENOUS DRIP
     Route: 041
     Dates: start: 20120402

REACTIONS (4)
  - FALL [None]
  - LOWER LIMB FRACTURE [None]
  - CONTUSION [None]
  - LACERATION [None]
